FAERS Safety Report 4823740-9 (Version None)
Quarter: 2005Q4

REPORT INFORMATION
  Report Type: 
  Country: None (occurrence: None)
  Receive Date: 20051109
  Receipt Date: 20051020
  Transmission Date: 20060501
  Serious: Yes (Hospitalization)
  Sender: FDA-Public Use
  Company Number: FI-ROCHE-423347

PATIENT
  Age: 74 Year
  Sex: Female
  Weight: 64.5 kg

DRUGS (8)
  1. INTERFERON ALFA-2A [Suspect]
     Indication: METASTATIC RENAL CELL CARCINOMA
     Route: 058
     Dates: start: 20050922, end: 20051006
  2. BLINDED BEVACIZUMAB [Suspect]
     Indication: METASTATIC RENAL CELL CARCINOMA
     Route: 042
     Dates: start: 20050922
  3. FUROSEMIDE [Concomitant]
  4. GLIMEPIRIDE [Concomitant]
  5. AMLODIPINE [Concomitant]
  6. ISOSORBIDE MONONITRATE [Concomitant]
  7. PREDNISOLONE [Concomitant]
     Dates: start: 20050910
  8. PANTOPRAZOL [Concomitant]
     Dates: start: 20050910

REACTIONS (1)
  - DEHYDRATION [None]
